FAERS Safety Report 7231617-7 (Version None)
Quarter: 2011Q1

REPORT INFORMATION
  Report Type: 
  Country: None (occurrence: None)
  Receive Date: 20110118
  Receipt Date: 20110106
  Transmission Date: 20110831
  Serious: Yes (Disabling)
  Sender: FDA-Public Use
  Company Number: GB-ASTRAZENECA-2010SE31094

PATIENT
  Age: 52 Year
  Sex: Female
  Weight: 44.5 kg

DRUGS (9)
  1. VENTOLIN [Concomitant]
     Route: 055
  2. GLICLAZIDE [Concomitant]
     Route: 048
  3. FELODIPINE [Suspect]
     Indication: HYPERTENSION
     Route: 048
     Dates: start: 20000101
  4. SIMVASTATIN [Concomitant]
     Route: 048
  5. SITAGLIPTIN [Concomitant]
     Route: 048
  6. CLENIL MODULITE [Concomitant]
     Route: 055
  7. METFORMIN [Concomitant]
     Route: 048
  8. OTOMIZE [Concomitant]
  9. LEVOTHYROXINE [Concomitant]
     Route: 048

REACTIONS (15)
  - OSTEOPOROSIS [None]
  - PARANOID PERSONALITY DISORDER [None]
  - SOFT TISSUE INFLAMMATION [None]
  - HYPOKINESIA [None]
  - VAGINAL PROLAPSE [None]
  - OSTEOPENIA [None]
  - DIABETES MELLITUS [None]
  - MUSCULOSKELETAL PAIN [None]
  - FIBULA FRACTURE [None]
  - SELF-INJURIOUS IDEATION [None]
  - BLINDNESS [None]
  - ABASIA [None]
  - WEIGHT DECREASED [None]
  - AGITATION [None]
  - FATIGUE [None]
